FAERS Safety Report 6864765-1 (Version None)
Quarter: 2010Q3

REPORT INFORMATION
  Report Type: 
  Country: None (occurrence: None)
  Receive Date: 20100721
  Receipt Date: 20080402
  Transmission Date: 20110219
  Serious: Yes (Other)
  Sender: FDA-Public Use
  Company Number: US-PFIZER INC-2008030414

PATIENT
  Sex: Male
  Weight: 97.5 kg

DRUGS (2)
  1. CHANTIX [Suspect]
     Indication: SMOKING CESSATION THERAPY
     Dates: start: 20080322
  2. XANAX [Concomitant]
     Indication: ANXIETY

REACTIONS (2)
  - ABNORMAL DREAMS [None]
  - HALLUCINATION [None]
